FAERS Safety Report 5987249-1 (Version None)
Quarter: 2008Q4

REPORT INFORMATION
  Report Type: 
  Country: None (occurrence: None)
  Receive Date: 20081209
  Receipt Date: 20081127
  Transmission Date: 20090506
  Serious: Yes (Other)
  Sender: FDA-Public Use
  Company Number: JP-MERCK-0811USA02234

PATIENT
  Age: 80 Year
  Sex: Male

DRUGS (4)
  1. PRIMAXIN [Suspect]
     Indication: CHOLECYSTITIS
     Route: 041
     Dates: start: 20081017, end: 20081027
  2. BFLUID [Concomitant]
     Route: 041
     Dates: start: 20081012, end: 20081110
  3. FAMOSTAGINE [Concomitant]
     Route: 051
     Dates: start: 20081012, end: 20081104
  4. WYSTAL [Concomitant]
     Route: 041
     Dates: start: 20081012, end: 20081016

REACTIONS (1)
  - LIVER FUNCTION TEST ABNORMAL [None]
